FAERS Safety Report 18230131 (Version 1)
Quarter: 2020Q3

REPORT INFORMATION
  Report Type: Spontaneous
  Country: US (occurrence: US)
  Receive Date: 20200903
  Receipt Date: 20200903
  Transmission Date: 20201103
  Serious: No
  Sender: FDA-Public Use
  Company Number: US-TEVA-2020-US-1822984

PATIENT
  Age: 66 Year
  Sex: Female
  Weight: 55.34 kg

DRUGS (5)
  1. MELATONIN [Concomitant]
     Active Substance: MELATONIN
     Indication: INSOMNIA
     Dosage: 1MG 1 TABLET BY MOUTH AT NIGHT
     Route: 048
  2. CLONAZEPAM. [Concomitant]
     Active Substance: CLONAZEPAM
     Indication: ANXIETY
     Dosage: 2MG 1 TABLET BY MOUTH DAILY AS NEEDED BUT ONLY TAKES?ONE AND A HALF DAILY
     Route: 048
  3. DESVENLAFAXINE ACTAVIS [Suspect]
     Active Substance: DESVENLAFAXINE
     Indication: DEPRESSION
  4. TRAZODONE [Concomitant]
     Active Substance: TRAZODONE HYDROCHLORIDE
     Indication: INSOMNIA
     Dosage: 0.75MG 1 TABLET BY MOUTH AT NIGHT
     Route: 048
  5. DESVENLAFAXINE ACTAVIS [Suspect]
     Active Substance: DESVENLAFAXINE
     Indication: ANXIETY
     Route: 048
     Dates: start: 20200819

REACTIONS (4)
  - Anxiety [Unknown]
  - Weight decreased [Unknown]
  - Paranoia [Unknown]
  - Decreased appetite [Unknown]

NARRATIVE: CASE EVENT DATE: 20200821
